FAERS Safety Report 8008774-8 (Version None)
Quarter: 2011Q4

REPORT INFORMATION
  Report Type: 
  Country: None (occurrence: None)
  Receive Date: 20111227
  Receipt Date: 20111215
  Transmission Date: 20120403
  Serious: Yes (Hospitalization)
  Sender: FDA-Public Use
  Company Number: US-NOVEN-11US003797

PATIENT
  Age: 13 Year
  Sex: Male
  Weight: 56.8 kg

DRUGS (6)
  1. ABILIFY [Concomitant]
  2. LETAIRIS [Concomitant]
  3. LITHIUM CARBONATE [Suspect]
     Indication: PRODUCT USED FOR UNKNOWN INDICATION
     Dosage: UNK
  4. SEROQUEL [Concomitant]
     Indication: PRODUCT USED FOR UNKNOWN INDICATION
  5. TYVASO [Concomitant]
     Indication: COR PULMONALE CHRONIC
     Dosage: 18-54 MCG FOUR TIMES A DAY
     Dates: start: 20110318
  6. LAMICTAL [Concomitant]
     Indication: PRODUCT USED FOR UNKNOWN INDICATION

REACTIONS (2)
  - SYNCOPE [None]
  - ABNORMAL BEHAVIOUR [None]
